FAERS Safety Report 9706855 (Version 3)
Quarter: 2015Q3

REPORT INFORMATION
  Report Type: Spontaneous
  Country: US (occurrence: US)
  Receive Date: 20131125
  Receipt Date: 20150707
  Transmission Date: 20151125
  Serious: Yes (Death, Hospitalization, Other)
  Sender: FDA-Public Use
  Company Number: US-009507513-1311USA009894

PATIENT
  Sex: Female
  Weight: 95.1 kg

DRUGS (2)
  1. JANUVIA [Suspect]
     Active Substance: SITAGLIPTIN PHOSPHATE
     Indication: TYPE 2 DIABETES MELLITUS
     Dosage: UNK
     Route: 048
     Dates: start: 20100108, end: 20100501
  2. JANUMET [Suspect]
     Active Substance: METFORMIN HYDROCHLORIDE\SITAGLIPTIN PHOSPHATE
     Indication: TYPE 2 DIABETES MELLITUS
     Dosage: 50-1000 MG BID
     Route: 048
     Dates: start: 20100125, end: 20100330

REACTIONS (45)
  - Thoracic operation [Unknown]
  - Biliary sepsis [Unknown]
  - Cholecystectomy [Unknown]
  - Oedema peripheral [Unknown]
  - Death [Fatal]
  - Cholangitis [Unknown]
  - Cardiac murmur [Unknown]
  - Memory impairment [Unknown]
  - Haemorrhoidal haemorrhage [Unknown]
  - Uterine dilation and curettage [Unknown]
  - Atrial septal defect [Unknown]
  - Erythema [Unknown]
  - Dysaesthesia [Unknown]
  - Peripheral sensory neuropathy [Unknown]
  - Oedema peripheral [Recovering/Resolving]
  - Pancreatic carcinoma metastatic [Unknown]
  - Dehydration [Unknown]
  - Metastases to central nervous system [Unknown]
  - Bile duct stent insertion [Unknown]
  - Xerosis [Unknown]
  - Bile duct stent insertion [Unknown]
  - Hypokalaemia [Unknown]
  - Partial lung resection [Unknown]
  - Culture urine positive [Unknown]
  - Cholecystitis [Unknown]
  - Asthenia [Unknown]
  - Bile duct stent insertion [Unknown]
  - Atelectasis [Unknown]
  - Chest X-ray abnormal [Unknown]
  - Lung infiltration [Unknown]
  - Oedema peripheral [Unknown]
  - Bile duct stent insertion [Unknown]
  - Hepatic steatosis [Unknown]
  - Gait disturbance [Unknown]
  - Adverse drug reaction [Unknown]
  - Metastases to lung [Unknown]
  - Haemorrhoids [Unknown]
  - Bile duct stent insertion [Unknown]
  - Stent placement [Unknown]
  - Skin toxicity [Unknown]
  - Back pain [Recovered/Resolved]
  - Blood potassium decreased [Unknown]
  - Bile duct stent insertion [Unknown]
  - Electrolyte imbalance [Unknown]
  - Constipation [Unknown]

NARRATIVE: CASE EVENT DATE: 201004
